FAERS Safety Report 6283906-0 (Version None)
Quarter: 2009Q3

REPORT INFORMATION
  Report Type: 
  Country: None (occurrence: None)
  Receive Date: 20090722
  Receipt Date: 20090722
  Transmission Date: 20100115
  Serious: No
  Sender: FDA-Public Use
  Company Number: None

PATIENT
  Sex: Female
  Weight: 73.9363 kg

DRUGS (2)
  1. ISONIAZID [Suspect]
     Indication: TUBERCULIN TEST POSITIVE
     Dosage: 1 TABLET DAILY PO
     Route: 048
     Dates: start: 20090701, end: 20090713
  2. PYRIDOXINE [Concomitant]

REACTIONS (7)
  - CHILLS [None]
  - HEADACHE [None]
  - HYPERAESTHESIA [None]
  - NIGHTMARE [None]
  - PAIN [None]
  - PYREXIA [None]
  - RASH MACULAR [None]
